FAERS Safety Report 10080767 (Version 1)
Quarter: 2014Q2

REPORT INFORMATION
  Report Type: Spontaneous
  Country: US (occurrence: US)
  Receive Date: 20140416
  Receipt Date: 20140416
  Transmission Date: 20141212
  Serious: Yes (Hospitalization)
  Sender: FDA-Public Use
  Company Number: US-JNJFOC-20140409671

PATIENT
  Age: 64 Year
  Sex: Male
  Weight: 104.33 kg

DRUGS (11)
  1. XARELTO [Suspect]
     Indication: CEREBROVASCULAR ACCIDENT PROPHYLAXIS
     Route: 048
     Dates: start: 20130113, end: 201302
  2. XARELTO [Suspect]
     Indication: ATRIAL FIBRILLATION
     Route: 048
     Dates: start: 20130113, end: 201302
  3. WARFARIN [Suspect]
     Indication: ATRIAL FIBRILLATION
     Route: 048
     Dates: start: 201302
  4. BYSTOLIC [Concomitant]
     Indication: BLOOD PRESSURE ABNORMAL
     Route: 048
  5. ZETIA [Concomitant]
     Indication: BLOOD CHOLESTEROL ABNORMAL
     Route: 048
  6. CRESTOR [Concomitant]
     Indication: BLOOD CHOLESTEROL ABNORMAL
     Route: 048
  7. PRILOSEC [Concomitant]
     Indication: GASTRIC DISORDER
     Route: 048
  8. K-DUR [Concomitant]
     Indication: ELECTROLYTE SUBSTITUTION THERAPY
     Route: 048
  9. VITAMIN D [Concomitant]
     Indication: VITAMIN SUPPLEMENTATION
     Route: 048
  10. ASPIRIN [Concomitant]
     Indication: CARDIAC DISORDER
     Route: 048
  11. TOPAMAX [Concomitant]
     Indication: CLUSTER HEADACHE
     Route: 048

REACTIONS (5)
  - Cardiac disorder [Recovered/Resolved]
  - Aortic arteriosclerosis [Unknown]
  - Cardiac pacemaker insertion [Unknown]
  - Coagulopathy [Not Recovered/Not Resolved]
  - Drug dose omission [Recovered/Resolved]
